FAERS Safety Report 17004353 (Version 1)
Quarter: 2019Q4

REPORT INFORMATION
  Report Type: Spontaneous
  Country: HR (occurrence: HR)
  Receive Date: 20191107
  Receipt Date: 20191107
  Transmission Date: 20200122
  Serious: Yes (Life-Threatening, Hospitalization)
  Sender: FDA-Public Use
  Company Number: HR-PFIZER INC-2019477387

PATIENT
  Sex: Male

DRUGS (2)
  1. ALPRAZOLAM. [Suspect]
     Active Substance: ALPRAZOLAM
     Dosage: SEVERAL TABLETS
     Route: 048
     Dates: start: 20190717, end: 20190717
  2. METADONA [Suspect]
     Active Substance: METHADONE HYDROCHLORIDE
     Dosage: 8-9 TABLETS
     Route: 048
     Dates: start: 20190717, end: 20190717

REACTIONS (3)
  - Coma [Recovered/Resolved]
  - Somnolence [Unknown]
  - Drug abuse [Unknown]

NARRATIVE: CASE EVENT DATE: 20190717
